FAERS Safety Report 21370993 (Version 1)
Quarter: 2022Q3

REPORT INFORMATION
  Report Type: Report from Study
  Country: PH (occurrence: None)
  Receive Date: 20220923
  Receipt Date: 20220923
  Transmission Date: 20221026
  Serious: Yes (Hospitalization, Other)
  Sender: FDA-Public Use
  Company Number: 2022A320942

PATIENT
  Age: 80 Year
  Sex: Female

DRUGS (1)
  1. IRESSA [Suspect]
     Active Substance: GEFITINIB
     Indication: Lung neoplasm malignant
     Dosage: 250.0MG UNKNOWN
     Route: 048
     Dates: start: 20220812, end: 20220818

REACTIONS (3)
  - Blood sodium decreased [Unknown]
  - Malignant neoplasm progression [Unknown]
  - Diarrhoea [Unknown]
